FAERS Safety Report 12957746 (Version 3)
Quarter: 2016Q4

REPORT INFORMATION
  Report Type: Spontaneous
  Country: BR (occurrence: BR)
  Receive Date: 20161118
  Receipt Date: 20161221
  Transmission Date: 20170207
  Serious: Yes (Other)
  Sender: FDA-Public Use
  Company Number: PHHY2016BR156064

PATIENT
  Age: 53 Year
  Sex: Female
  Weight: 77 kg

DRUGS (3)
  1. METFORMIN [Concomitant]
     Active Substance: METFORMIN HYDROCHLORIDE
     Indication: INSULIN RESISTANCE
     Dosage: 1 DF, QD
     Route: 048
     Dates: start: 201510
  2. FORXIGA [Concomitant]
     Active Substance: DAPAGLIFLOZIN
     Indication: GLUCOSE URINE PRESENT
     Dosage: HALF TABLET DAILY
     Route: 048
     Dates: start: 201610
  3. ESTALIS [Suspect]
     Active Substance: ESTRADIOL\NORETHINDRONE ACETATE
     Indication: HORMONE REPLACEMENT THERAPY
     Dosage: 1 DF, BIW
     Route: 062

REACTIONS (13)
  - Discomfort [Unknown]
  - Middle insomnia [Unknown]
  - Skin irritation [Unknown]
  - Depression [Recovering/Resolving]
  - Hot flush [Recovering/Resolving]
  - Malabsorption from application site [Unknown]
  - Incorrect product storage [Unknown]
  - Muscle spasms [Recovering/Resolving]
  - Product quality issue [Unknown]
  - Haemorrhage [Not Recovered/Not Resolved]
  - Insomnia [Unknown]
  - Product adhesion issue [Unknown]
  - Drug ineffective [Unknown]

NARRATIVE: CASE EVENT DATE: 201605
